FAERS Safety Report 15093581 (Version 2)
Quarter: 2018Q3

REPORT INFORMATION
  Report Type: Spontaneous
  Country: US (occurrence: US)
  Receive Date: 20180629
  Receipt Date: 20180706
  Transmission Date: 20181010
  Serious: No
  Sender: FDA-Public Use
  Company Number: US-IPSEN BIOPHARMACEUTICALS, INC.-2018-06791

PATIENT
  Age: 34 Year
  Sex: Male

DRUGS (4)
  1. DYSPORT [Suspect]
     Active Substance: ABOBOTULINUMTOXINA
     Indication: SKIN WRINKLING
     Dosage: NOT REPORTED
     Route: 065
     Dates: start: 201802, end: 201802
  2. DYSPORT [Suspect]
     Active Substance: ABOBOTULINUMTOXINA
     Indication: OFF LABEL USE
  3. DYSPORT [Suspect]
     Active Substance: ABOBOTULINUMTOXINA
     Indication: SKIN WRINKLING
  4. DYSPORT [Suspect]
     Active Substance: ABOBOTULINUMTOXINA
     Indication: SKIN WRINKLING
     Dosage: NOT REPORTED
     Route: 030
     Dates: start: 201712, end: 201712

REACTIONS (18)
  - Off label use [Unknown]
  - Injection site discolouration [Not Recovered/Not Resolved]
  - Skin wound [Unknown]
  - Inappropriate schedule of drug administration [Unknown]
  - Injection site scar [Unknown]
  - Drug effect decreased [Unknown]
  - Acne [Recovered/Resolved]
  - Injection site pain [Unknown]
  - Muscular weakness [Recovered/Resolved]
  - Wrong technique in product usage process [Unknown]
  - Application site acne [Recovered/Resolved]
  - Fatigue [Unknown]
  - Acne [Recovered/Resolved]
  - Injection site extravasation [Unknown]
  - Application site acne [Recovered/Resolved]
  - Injection site rash [Recovering/Resolving]
  - Asthenia [Unknown]
  - Needle issue [Unknown]

NARRATIVE: CASE EVENT DATE: 201712
